FAERS Safety Report 23863701 (Version 3)
Quarter: 2024Q4

REPORT INFORMATION
  Report Type: Spontaneous
  Country: GB (occurrence: GB)
  Receive Date: 20240516
  Receipt Date: 20241018
  Transmission Date: 20250114
  Serious: Yes (Hospitalization, Other)
  Sender: TEVA
  Company Number: GB-TEVA-VS-3198455

PATIENT
  Age: 46 Year
  Sex: Male

DRUGS (2)
  1. AMLODIPINE [Suspect]
     Active Substance: AMLODIPINE BESYLATE
     Indication: Intentional overdose
     Dosage: INTENTIONALLY INGESTED AMLODIPINE 50X5MG TABLETS
     Route: 048
  2. AMLODIPINE BESYLATE [Suspect]
     Active Substance: AMLODIPINE BESYLATE
     Indication: Intentional overdose
     Dosage: INTENTIONALLY INGESTED AMLODIPINE 50X5MG TABLETS
     Route: 048

REACTIONS (5)
  - Myocarditis [Recovering/Resolving]
  - Intentional overdose [Unknown]
  - Left ventricular dysfunction [Recovering/Resolving]
  - Pulmonary oedema [Recovering/Resolving]
  - Abdominal pain [Recovering/Resolving]
